FAERS Safety Report 5323802-6 (Version None)
Quarter: 2007Q2

REPORT INFORMATION
  Report Type: 
  Country: None (occurrence: None)
  Receive Date: 20070514
  Receipt Date: 20070510
  Transmission Date: 20071010
  Serious: Yes (Hospitalization)
  Sender: FDA-Public Use
  Company Number: A0650812A

PATIENT
  Age: 49 Year
  Sex: Male

DRUGS (8)
  1. FLOVENT [Suspect]
     Indication: EMPHYSEMA
     Dosage: 220MCG TWICE PER DAY
     Route: 055
     Dates: start: 20070301
  2. COMBIVENT [Concomitant]
  3. ALBUTEROL [Concomitant]
  4. SEROQUEL [Concomitant]
  5. UNKNOWN [Concomitant]
  6. NEURONTIN [Concomitant]
  7. PHENERGAN HCL [Concomitant]
  8. MIRTAZAPINE [Concomitant]

REACTIONS (3)
  - DEPRESSION [None]
  - DRUG SCREEN FALSE POSITIVE [None]
  - SUICIDAL IDEATION [None]
